FAERS Safety Report 9204647 (Version 1)
Quarter: 2013Q2

REPORT INFORMATION
  Report Type: Spontaneous
  Country: US (occurrence: US)
  Receive Date: 20130402
  Receipt Date: 20130402
  Transmission Date: 20140414
  Serious: No
  Sender: FDA-Public Use
  Company Number: US-009507513-1303USA013830

PATIENT
  Age: 68 Year
  Sex: Male

DRUGS (7)
  1. AZASITE [Suspect]
     Indication: FOREIGN BODY SENSATION IN EYES
     Dosage: ONE DROP IN EACH EYE TWICE DAILY FOR THE FIRST TWO DAYS
     Route: 047
     Dates: start: 20130307, end: 20130308
  2. AZASITE [Suspect]
     Dosage: ONE DROP IN EACH EYE DAILY FOR THE NEXT FOUR WEEKS
     Route: 047
     Dates: start: 20130309
  3. METOPROLOL [Concomitant]
  4. DOXYCYCLINE [Concomitant]
  5. GLYBURIDE [Concomitant]
  6. FUROSEMIDE [Concomitant]
  7. ISOSORBIDE MONONITRATE [Concomitant]

REACTIONS (5)
  - Visual impairment [Not Recovered/Not Resolved]
  - Off label use [Unknown]
  - Inappropriate schedule of drug administration [Unknown]
  - Product packaging quantity issue [Unknown]
  - Product quality issue [Unknown]
